FAERS Safety Report 7259452-4 (Version None)
Quarter: 2011Q1

REPORT INFORMATION
  Report Type: 
  Country: None (occurrence: None)
  Receive Date: 20110129
  Receipt Date: 20100819
  Transmission Date: 20110831
  Serious: No
  Sender: FDA-Public Use
  Company Number: US-ABBOTT-10P-163-0666530-00

PATIENT
  Sex: Female
  Weight: 108.05 kg

DRUGS (5)
  1. MULTIPLE VITAMINS [Concomitant]
     Indication: VITAMIN SUPPLEMENTATION
  2. ARAVA [Concomitant]
     Indication: PSORIATIC ARTHROPATHY
  3. LEVOTHYROXINE SODIUM [Concomitant]
     Indication: HYPOTHYROIDISM
  4. SULANDAC [Concomitant]
     Indication: ARTHRITIS
  5. HUMIRA [Suspect]
     Indication: PSORIATIC ARTHROPATHY
     Dates: start: 20100501

REACTIONS (2)
  - DEVICE MALFUNCTION [None]
  - INJECTION SITE PAIN [None]
